FAERS Safety Report 13295602 (Version 2)
Quarter: 2017Q1

REPORT INFORMATION
  Report Type: Report from Study
  Country: US (occurrence: US)
  Receive Date: 20170303
  Receipt Date: 20170331
  Transmission Date: 20170428
  Serious: Yes (Hospitalization)
  Sender: FDA-Public Use
  Company Number: US-EMD SERONO-E2B_80058590

PATIENT
  Age: 52 Year
  Sex: Male
  Weight: 90 kg

DRUGS (3)
  1. REBIF [Suspect]
     Active Substance: INTERFERON BETA-1A
     Indication: MULTIPLE SCLEROSIS
     Route: 058
     Dates: start: 20090810
  2. MODAFINIL. [Concomitant]
     Active Substance: MODAFINIL
     Indication: PRODUCT USED FOR UNKNOWN INDICATION
  3. BABY ASPIRIN [Concomitant]
     Active Substance: ASPIRIN
     Indication: HYPERTENSION

REACTIONS (10)
  - Injection site induration [Not Recovered/Not Resolved]
  - Temperature intolerance [Unknown]
  - Multiple sclerosis relapse [Not Recovered/Not Resolved]
  - Staphylococcal infection [Recovered/Resolved]
  - Hypertension [Unknown]
  - Lack of injection site rotation [Recovered/Resolved]
  - Injection site infection [Recovered/Resolved]
  - Hiccups [Recovered/Resolved]
  - Family stress [Unknown]
  - Fall [Unknown]

NARRATIVE: CASE EVENT DATE: 201608
